FAERS Safety Report 13842432 (Version 1)
Quarter: 2017Q3

REPORT INFORMATION
  Report Type: Spontaneous
  Country: US (occurrence: US)
  Receive Date: 20170807
  Receipt Date: 20170807
  Transmission Date: 20171127
  Serious: Yes (Hospitalization)
  Sender: FDA-Public Use
  Company Number: None

PATIENT
  Age: 53 Year
  Sex: Male
  Weight: 62.12 kg

DRUGS (3)
  1. CANGLIFOZIN [Concomitant]
  2. METFORMIN [Concomitant]
     Active Substance: METFORMIN HYDROCHLORIDE
  3. LUCENTIS [Suspect]
     Active Substance: RANIBIZUMAB
     Dosage: OTHER ROUTE:INTRAVITREAL?

REACTIONS (2)
  - Taeniasis [None]
  - Headache [None]

NARRATIVE: CASE EVENT DATE: 20170725
